FAERS Safety Report 15002857 (Version 3)
Quarter: 2018Q3

REPORT INFORMATION
  Report Type: Spontaneous
  Country: HU (occurrence: HU)
  Receive Date: 20180612
  Receipt Date: 20180814
  Transmission Date: 20181010
  Serious: Yes (Other)
  Sender: FDA-Public Use
  Company Number: HU-ALLERGAN-1830077US

PATIENT
  Age: 15 Year
  Sex: Male

DRUGS (4)
  1. MESALAZINE UNK [Suspect]
     Active Substance: MESALAMINE
     Indication: CROHN^S DISEASE
     Dosage: UNK
     Route: 065
  2. AZATHIOPRINE. [Suspect]
     Active Substance: AZATHIOPRINE
     Indication: CROHN^S DISEASE
     Dosage: UNK
     Route: 065
  3. BUDESONIDE. [Suspect]
     Active Substance: BUDESONIDE
     Dosage: UNK
     Route: 048
  4. BUDESONIDE. [Suspect]
     Active Substance: BUDESONIDE
     Indication: CROHN^S DISEASE
     Dosage: UNK
     Route: 054

REACTIONS (2)
  - Priapism [Recovered/Resolved]
  - Crohn^s disease [Recovered/Resolved]
